FAERS Safety Report 6408600-4 (Version None)
Quarter: 2009Q4

REPORT INFORMATION
  Report Type: 
  Country: None (occurrence: None)
  Receive Date: 20091019
  Receipt Date: 20091009
  Transmission Date: 20100525
  Serious: Yes (Other)
  Sender: FDA-Public Use
  Company Number: ADR42482009

PATIENT
  Age: 30 Year
  Sex: Female

DRUGS (5)
  1. CIPROFLOXACIN [Suspect]
     Indication: ABDOMINAL DISCOMFORT
     Dosage: 1000 MG / DAY ORAL
     Route: 047
     Dates: start: 20070626, end: 20070704
  2. DOXYCYCLINE [Concomitant]
  3. LOPERAMIDE [Concomitant]
  4. PROGESTERONE [Concomitant]
  5. TINIDAZOLE [Concomitant]

REACTIONS (14)
  - ANXIETY [None]
  - ATAXIA [None]
  - DIARRHOEA [None]
  - DYSAESTHESIA [None]
  - GASTROINTESTINAL HAEMORRHAGE [None]
  - HAEMATOCHEZIA [None]
  - HYPERHIDROSIS [None]
  - HYPOAESTHESIA [None]
  - INSOMNIA [None]
  - NEUROPATHY PERIPHERAL [None]
  - PARAESTHESIA [None]
  - PARANOIA [None]
  - PYREXIA [None]
  - THINKING ABNORMAL [None]
